FAERS Safety Report 13261914 (Version 6)
Quarter: 2017Q2

REPORT INFORMATION
  Report Type: Report from Study
  Country: FR (occurrence: FR)
  Receive Date: 20170222
  Receipt Date: 20170609
  Transmission Date: 20170830
  Serious: Yes (Hospitalization, Other)
  Sender: FDA-Public Use
  Company Number: FR-B.I. PHARMACEUTICALS,INC./RIDGEFIELD-2017-BI-001498

PATIENT
  Age: 54 Year
  Sex: Female
  Weight: 67 kg

DRUGS (3)
  1. BIBF 1120 [Suspect]
     Active Substance: NINTEDANIB
     Route: 048
     Dates: end: 20170213
  2. PARACETAMOL [Concomitant]
     Active Substance: ACETAMINOPHEN
     Indication: MUSCULOSKELETAL CHEST PAIN
     Route: 048
     Dates: start: 201610
  3. BIBF 1120 [Suspect]
     Active Substance: NINTEDANIB
     Indication: CLEAR CELL ENDOMETRIAL CARCINOMA
     Dosage: CUMULATIVE DOSE PRIOR TO EVENT - 6800 MG?CUMULATIVE DOSE PRIOR TO SAE - 22000 MG
     Route: 048
     Dates: start: 20161220, end: 20170105

REACTIONS (3)
  - Bone pain [Recovered/Resolved with Sequelae]
  - Pulmonary embolism [Recovered/Resolved with Sequelae]
  - Thrombosis [Recovered/Resolved with Sequelae]

NARRATIVE: CASE EVENT DATE: 20170106
